FAERS Safety Report 21558829 (Version 5)
Quarter: 2023Q1

REPORT INFORMATION
  Report Type: Spontaneous
  Country: CA (occurrence: CA)
  Receive Date: 20221107
  Receipt Date: 20230316
  Transmission Date: 20230417
  Serious: Yes (Hospitalization, Other)
  Sender: FDA-Public Use
  Company Number: CA-PFIZER INC-202201269399

PATIENT
  Age: 33 Year
  Sex: Male

DRUGS (6)
  1. ABRILADA [Suspect]
     Active Substance: ADALIMUMAB-AFZB
     Indication: Crohn^s disease
     Dosage: 40 MG, EVERY 2 WEEKS
     Route: 058
     Dates: start: 20220708, end: 2022
  2. ABRILADA [Suspect]
     Active Substance: ADALIMUMAB-AFZB
     Dosage: 160 MG
     Route: 058
     Dates: start: 20221110
  3. ABRILADA [Suspect]
     Active Substance: ADALIMUMAB-AFZB
     Dosage: 40 MG, REINDUCTION - 160MG WEEK 0, 80MG WEEK 2, THEN 40MG EVERY 2 WEEKS - PREFILLED PEN
     Route: 058
     Dates: start: 20221110
  4. ABRILADA [Suspect]
     Active Substance: ADALIMUMAB-AFZB
     Dosage: 40 MG, WEEKLY, 80MG IN 2 WEEKS THEN 40MG Q WEEKLY. DISCONTINUED
     Route: 058
  5. MESALAMINE [Concomitant]
     Active Substance: MESALAMINE
     Dosage: 6 MG
     Route: 065
     Dates: start: 20221014
  6. PREDNISONE [Concomitant]
     Active Substance: PREDNISONE
     Dosage: UNK, STOPPING

REACTIONS (11)
  - Condition aggravated [Not Recovered/Not Resolved]
  - Diarrhoea [Recovering/Resolving]
  - Weight decreased [Unknown]
  - Drug ineffective [Unknown]
  - Stress [Unknown]
  - Malaise [Not Recovered/Not Resolved]
  - Abdominal pain [Not Recovered/Not Resolved]
  - Mucous stools [Recovering/Resolving]
  - Device use issue [Unknown]
  - Off label use [Unknown]
  - Inappropriate schedule of product administration [Unknown]

NARRATIVE: CASE EVENT DATE: 20220101
